FAERS Safety Report 15974030 (Version 9)
Quarter: 2020Q4

REPORT INFORMATION
  Report Type: Report from Study
  Country: None (occurrence: FR)
  Receive Date: 20190217
  Receipt Date: 20201012
  Transmission Date: 20210113
  Serious: Yes (Death, Other)
  Sender: FDA-Public Use
  Company Number: FR-ABBVIE-19K-056-2668897-00

PATIENT
  Age: 73 Year
  Sex: Male
  Weight: 60 kg

DRUGS (12)
  1. ESOMEPRAZOLE. [Concomitant]
     Active Substance: ESOMEPRAZOLE MAGNESIUM
     Indication: INFECTION PROPHYLAXIS
     Dates: start: 20181019
  2. OROCAL [Concomitant]
     Indication: PATHOLOGICAL FRACTURE PROPHYLAXIS
     Dates: start: 20181016
  3. VENCLYXTO [Suspect]
     Active Substance: VENETOCLAX
     Indication: CHRONIC LYMPHOCYTIC LEUKAEMIA
     Route: 048
     Dates: start: 20181010, end: 20181016
  4. VENCLYXTO [Suspect]
     Active Substance: VENETOCLAX
     Route: 048
     Dates: start: 20181017, end: 20181023
  5. UVEDOSE [Concomitant]
     Active Substance: CHOLECALCIFEROL
     Indication: PATHOLOGICAL FRACTURE PROPHYLAXIS
     Dates: start: 20181016
  6. NOCTAMIDE [Concomitant]
     Active Substance: LORMETAZEPAM
     Indication: DEPRESSION
     Dates: start: 2017
  7. XANAX [Concomitant]
     Active Substance: ALPRAZOLAM
     Indication: DEPRESSION
     Dates: start: 201810
  8. BISPHOSPHONATES [Concomitant]
     Active Substance: UNSPECIFIED INGREDIENT
     Indication: DENTAL DISORDER PROPHYLAXIS
     Dates: start: 20181016
  9. LACOSAMIDE. [Concomitant]
     Active Substance: LACOSAMIDE
     Indication: SEIZURE PROPHYLAXIS
     Dates: start: 20181019
  10. ZELITREX [Concomitant]
     Active Substance: VALACYCLOVIR HYDROCHLORIDE
     Indication: INFECTION PROPHYLAXIS
     Dates: start: 20181010
  11. BACTRIM [Concomitant]
     Active Substance: SULFAMETHOXAZOLE\TRIMETHOPRIM
     Indication: INFECTION PROPHYLAXIS
     Dates: start: 20181010
  12. ESCITALOPRAM [Concomitant]
     Active Substance: ESCITALOPRAM OXALATE
     Indication: DEPRESSION
     Dates: start: 2017

REACTIONS (13)
  - Progressive multifocal leukoencephalopathy [Fatal]
  - Pain [Not Recovered/Not Resolved]
  - Pyrexia [Unknown]
  - Hyperuricaemia [Recovered/Resolved]
  - Spinal pain [Not Recovered/Not Resolved]
  - Neurological decompensation [Not Recovered/Not Resolved]
  - Hypocalcaemia [Recovered/Resolved]
  - Hemianopia homonymous [Not Recovered/Not Resolved]
  - Diarrhoea [Not Recovered/Not Resolved]
  - Urinary incontinence [Not Recovered/Not Resolved]
  - Ecchymosis [Unknown]
  - Richter^s syndrome [Fatal]
  - Constipation [Unknown]

NARRATIVE: CASE EVENT DATE: 201810
